FAERS Safety Report 24097030 (Version 1)
Quarter: 2024Q3

REPORT INFORMATION
  Report Type: Spontaneous
  Country: US (occurrence: US)
  Receive Date: 20240716
  Receipt Date: 20240716
  Transmission Date: 20241016
  Serious: No
  Sender: GRIFOLS
  Company Number: US-IGSA-BIG0029167

PATIENT
  Age: 8 Year
  Sex: Male

DRUGS (7)
  1. HUMAN IMMUNOGLOBULIN G [Suspect]
     Active Substance: HUMAN IMMUNOGLOBULIN G
     Indication: Encephalitis autoimmune
     Dosage: UNK UNKNOWN, UNKNOWN
     Route: 042
  2. CLONIDINE [Concomitant]
     Active Substance: CLONIDINE
  3. OLANZAPINE [Concomitant]
     Active Substance: OLANZAPINE
  4. FLUVOXAMINE [Concomitant]
     Active Substance: FLUVOXAMINE
  5. VALPROATE [Concomitant]
     Active Substance: VALPROIC ACID
  6. METHYLPREDNISOLONE [Concomitant]
     Active Substance: METHYLPREDNISOLONE
     Dosage: UNK UNK, Q.M.T.
  7. RITUXIMAB [Concomitant]
     Active Substance: RITUXIMAB

REACTIONS (3)
  - Nausea [Unknown]
  - Vomiting [Unknown]
  - Headache [Unknown]
